FAERS Safety Report 8481665 (Version 4)
Quarter: 2012Q4

REPORT INFORMATION
  Report Type: Report from Study
  Country: IT (occurrence: IT)
  Receive Date: 20120329
  Receipt Date: 20121004
  Transmission Date: 20130627
  Serious: Yes (Other)
  Sender: FDA-Public Use
  Company Number: IT-BRISTOL-MYERS SQUIBB COMPANY-16449944

PATIENT
  Age: 56 Year
  Sex: Male

DRUGS (6)
  1. BLINDED: SAXAGLIPTIN [Suspect]
     Indication: TYPE 2 DIABETES MELLITUS
     Dates: start: 20110310, end: 20120309
  2. METFORMIN HCL [Suspect]
     Indication: TYPE 2 DIABETES MELLITUS
  3. GLIMEPIRIDE [Suspect]
     Indication: TYPE 2 DIABETES MELLITUS
  4. BLINDED: PLACEBO [Suspect]
     Indication: TYPE 2 DIABETES MELLITUS
     Dates: start: 20110310, end: 20120309
  5. PARACETAMOL [Suspect]
     Dates: start: 20111201, end: 20120309
  6. ASPIRIN [Concomitant]

REACTIONS (1)
  - Alanine aminotransferase increased [Not Recovered/Not Resolved]
